FAERS Safety Report 8848607 (Version 1)
Quarter: 2012Q4

REPORT INFORMATION
  Report Type: 
  Country: BE (occurrence: BE)
  Receive Date: 20121019
  Receipt Date: 20121019
  Transmission Date: 20130627
  Serious: Yes (Hospitalization)
  Sender: FDA-Public Use
  Company Number: BE-BRISTOL-MYERS SQUIBB COMPANY-17027111

PATIENT
  Age: 26 Year
  Sex: Male

DRUGS (7)
  1. TRAZODONE HCL [Suspect]
     Indication: SCHIZOID PERSONALITY DISORDER
  2. CLOTIAPINE [Suspect]
     Indication: SCHIZOID PERSONALITY DISORDER
  3. QUETIAPINE [Concomitant]
     Indication: SCHIZOID PERSONALITY DISORDER
  4. LAMOTRIGINE [Concomitant]
     Indication: SCHIZOID PERSONALITY DISORDER
  5. LORAZEPAM [Concomitant]
     Indication: SCHIZOID PERSONALITY DISORDER
  6. ESCITALOPRAM [Concomitant]
     Indication: SCHIZOID PERSONALITY DISORDER
  7. ZUCLOPENTHIXOL [Concomitant]
     Indication: SCHIZOID PERSONALITY DISORDER

REACTIONS (2)
  - Necrotising colitis [Recovered/Resolved]
  - Overdose [Unknown]
